FAERS Safety Report 8395170-7 (Version None)
Quarter: 2012Q2

REPORT INFORMATION
  Report Type: 
  Country: None (occurrence: None)
  Receive Date: 20120530
  Receipt Date: 20120521
  Transmission Date: 20120825
  Serious: Yes (Other)
  Sender: FDA-Public Use
  Company Number: US-PERRIGO-12US003556

PATIENT
  Sex: Female
  Weight: 56.689 kg

DRUGS (5)
  1. NAPROXEN SODIUM [Suspect]
     Indication: PAIN
     Dosage: 220 MG, BID
     Route: 048
     Dates: start: 20120220, end: 20120320
  2. PROTONIX [Concomitant]
     Indication: GASTRIC DISORDER
     Dosage: UNK
     Route: 065
     Dates: start: 20020101
  3. LIBRAX [Concomitant]
     Indication: ANXIETY
     Dosage: UNK
     Route: 065
     Dates: start: 20020101
  4. XANAX [Concomitant]
     Indication: ANXIETY
     Dosage: UNK
     Route: 065
     Dates: start: 20020101
  5. SYNTHROID [Concomitant]
     Indication: HYPERCHOLESTEROLAEMIA
     Dosage: UNK
     Route: 065
     Dates: start: 20040101

REACTIONS (3)
  - INCORRECT DRUG ADMINISTRATION DURATION [None]
  - ABNORMAL DREAMS [None]
  - HALLUCINATION [None]
